FAERS Safety Report 7078401-5 (Version None)
Quarter: 2010Q4

REPORT INFORMATION
  Report Type: 
  Country: None (occurrence: None)
  Receive Date: 20101102
  Receipt Date: 20101026
  Transmission Date: 20110411
  Serious: Yes (Hospitalization)
  Sender: FDA-Public Use
  Company Number: JP-BAYER-200910864BYL

PATIENT
  Age: 53 Year
  Sex: Female
  Weight: 57 kg

DRUGS (15)
  1. NEXAVAR [Suspect]
     Indication: RENAL CELL CARCINOMA STAGE IV
     Dosage: TOTAL DAILY DOSE: 800 MG  UNIT DOSE: 200 MG
     Route: 048
     Dates: start: 20090311, end: 20090318
  2. URSO 250 [Concomitant]
     Dosage: UNIT DOSE: 100 MG
     Route: 048
  3. PROHEPARUM [Concomitant]
     Route: 048
  4. JUZEN-TAIHO-TO [Concomitant]
     Route: 048
  5. DEPAS [Concomitant]
     Dosage: UNIT DOSE: 0.5 MG
     Route: 048
  6. TAGAMET [Concomitant]
     Dosage: UNIT DOSE: 200 MG
     Route: 048
  7. WARFARIN [Concomitant]
     Dosage: UNIT DOSE: 1 MG
     Route: 048
  8. ZYLORIC [Concomitant]
     Dosage: UNIT DOSE: 100 MG
     Route: 048
  9. MOBIC [Concomitant]
     Route: 048
  10. ACECOL [Concomitant]
     Dosage: UNIT DOSE: 2 MG
     Route: 048
  11. AMLODIN OD [Concomitant]
     Dosage: UNIT DOSE: 2.5 MG
     Route: 048
  12. GLUFAST [Concomitant]
     Dosage: UNIT DOSE: 10 MG
     Route: 048
  13. LEVOTHYROXINE SODIUM [Concomitant]
     Dosage: UNIT DOSE: 25 ?G
     Route: 048
  14. OLMETEC [Concomitant]
     Dosage: UNIT DOSE: 20 MG
     Route: 048
  15. BENZALIN [Concomitant]
     Dosage: UNIT DOSE: 5 MG
     Route: 048

REACTIONS (4)
  - ERYTHEMA MULTIFORME [None]
  - HYPERTENSION [None]
  - HYPOTHYROIDISM [None]
  - PALMAR-PLANTAR ERYTHRODYSAESTHESIA SYNDROME [None]
